FAERS Safety Report 6174484-5 (Version None)
Quarter: 2009Q2

REPORT INFORMATION
  Report Type: 
  Country: None (occurrence: None)
  Receive Date: 20090430
  Receipt Date: 20081030
  Transmission Date: 20091009
  Serious: No
  Sender: FDA-Public Use
  Company Number: US-ASTRAZENECA-2008UW12586

PATIENT
  Age: 85 Year
  Sex: Female

DRUGS (7)
  1. NEXIUM [Suspect]
     Indication: GASTROOESOPHAGEAL REFLUX DISEASE
     Route: 048
     Dates: start: 20030101
  2. NEXIUM [Suspect]
     Route: 048
     Dates: start: 20080619
  3. LIPITOR [Concomitant]
  4. CARTIA XT [Concomitant]
     Indication: CARDIAC DISORDER
  5. ASPIRIN [Concomitant]
  6. PULMICORT-100 [Concomitant]
     Route: 055
  7. OXYGEN [Concomitant]
     Dosage: AT NIGHT AND WHEN SHE GOES OUT DURING THE DAY

REACTIONS (8)
  - ABDOMINAL DISCOMFORT [None]
  - DRY MOUTH [None]
  - DRY THROAT [None]
  - DYSPHONIA [None]
  - GASTROOESOPHAGEAL REFLUX DISEASE [None]
  - OROPHARYNGEAL PAIN [None]
  - REGURGITATION [None]
  - VOMITING [None]
